FAERS Safety Report 9075275 (Version 1)
Quarter: 2013Q1

REPORT INFORMATION
  Report Type: Spontaneous
  Country: JP (occurrence: JP)
  Receive Date: 20130128
  Receipt Date: 20130128
  Transmission Date: 20140127
  Serious: Yes (Other)
  Sender: FDA-Public Use
  Company Number: JP-SPECTRUM PHARMACEUTICALS, INC.-13-F-JP-00022

PATIENT
  Age: 54 Year
  Sex: Female

DRUGS (6)
  1. FLUOROURACIL [Suspect]
     Indication: COLON CANCER
     Dosage: UNK
     Route: 065
  2. FLUOROURACIL [Suspect]
     Indication: METASTASES TO LIVER
  3. LEUCOVORIN                         /00566701/ [Suspect]
     Indication: COLON CANCER
     Dosage: UNK
     Route: 065
  4. LEUCOVORIN                         /00566701/ [Suspect]
     Indication: METASTASES TO LIVER
  5. OXALIPLATIN [Suspect]
     Indication: COLON CANCER
     Dosage: UNK
     Route: 065
  6. OXALIPLATIN [Suspect]
     Indication: METASTASES TO LIVER

REACTIONS (10)
  - Hyperammonaemia [Recovering/Resolving]
  - Ejection fraction decreased [Recovering/Resolving]
  - Hypoxia [Recovering/Resolving]
  - Oliguria [Recovering/Resolving]
  - Blood creatinine increased [Recovering/Resolving]
  - Depressed level of consciousness [Recovering/Resolving]
  - Gastrointestinal disorder [Recovering/Resolving]
  - Cognitive disorder [Recovering/Resolving]
  - Asterixis [Recovering/Resolving]
  - Ammonia increased [Recovering/Resolving]
